FAERS Safety Report 5718000-8 (Version None)
Quarter: 2008Q2

REPORT INFORMATION
  Report Type: 
  Country: None (occurrence: None)
  Receive Date: 20080425
  Receipt Date: 20080424
  Transmission Date: 20081010
  Serious: Yes (Other)
  Sender: FDA-Public Use
  Company Number: B0514884A

PATIENT
  Age: 23 Year
  Sex: Female
  Weight: 20 kg

DRUGS (5)
  1. MODACIN [Suspect]
     Indication: PYELONEPHRITIS
     Dosage: 500MG FOUR TIMES PER DAY
     Route: 042
     Dates: start: 20080219, end: 20080219
  2. EBRANTIL [Concomitant]
     Indication: HYPERTENSION
     Dosage: 45MG PER DAY
     Route: 048
     Dates: start: 20070701
  3. BACTRIM [Concomitant]
     Indication: URINARY TRACT INFECTION
     Dosage: 1G PER DAY
     Route: 048
     Dates: start: 20070701
  4. SEPAMIT [Concomitant]
     Indication: HYPERTENSION
     Dosage: .5G PER DAY
     Route: 048
     Dates: start: 20070501
  5. SOLDEM 3A [Concomitant]
     Indication: PYELONEPHRITIS
     Route: 042
     Dates: start: 20080219, end: 20080222

REACTIONS (2)
  - ANAPHYLACTIC REACTION [None]
  - RASH ERYTHEMATOUS [None]
